FAERS Safety Report 25563829 (Version 1)
Quarter: 2025Q3

REPORT INFORMATION
  Report Type: Spontaneous
  Country: US (occurrence: US)
  Receive Date: 20250716
  Receipt Date: 20250716
  Transmission Date: 20251020
  Serious: No
  Sender: RECORDATI
  Company Number: US-RECORDATI RARE DISEASE INC.-2025001034

PATIENT
  Age: 76 Year
  Sex: Male

DRUGS (3)
  1. PANHEMATIN [Suspect]
     Active Substance: HEMIN
     Indication: Porphyria acute
     Route: 042
  2. PANHEMATIN [Suspect]
     Active Substance: HEMIN
     Indication: Prophylaxis
     Route: 042
     Dates: start: 20250213
  3. PANHEMATIN [Suspect]
     Active Substance: HEMIN
     Indication: Off label use

REACTIONS (3)
  - Infusion site pain [Unknown]
  - Application site extravasation [Unknown]
  - Off label use [Recovered/Resolved]
